FAERS Safety Report 5280632-1 (Version None)
Quarter: 2007Q1

REPORT INFORMATION
  Report Type: 
  Country: None (occurrence: None)
  Receive Date: 20061221
  Receipt Date: 20060808
  Transmission Date: 20070707
  Serious: No
  Sender: FDA-Public Use
  Company Number: US-CVT-061691

PATIENT
  Age: 81 Year
  Sex: Female

DRUGS (8)
  1. RANEXA [Suspect]
     Indication: ANGINA PECTORIS
     Dosage: SEE IMAGE
     Route: 048
     Dates: start: 20060519, end: 20060531
  2. RANEXA [Suspect]
     Indication: ANGINA PECTORIS
     Dosage: SEE IMAGE
     Route: 048
     Dates: start: 20060531, end: 20060609
  3. ASPIRIN [Concomitant]
  4. ALLEGRA [Concomitant]
  5. FOSAMAX [Concomitant]
  6. ISOSORBIDE MONONITRATE [Concomitant]
  7. LOVASTATIN [Concomitant]
  8. VERAPAMIL /00014301/(VERAPAMIL) [Concomitant]

REACTIONS (1)
  - ANGINA PECTORIS [None]
